FAERS Safety Report 5235400-3 (Version None)
Quarter: 2007Q1

REPORT INFORMATION
  Report Type: 
  Country: None (occurrence: None)
  Receive Date: 20070212
  Receipt Date: 20070130
  Transmission Date: 20070707
  Serious: Yes (Hospitalization)
  Sender: FDA-Public Use
  Company Number: 2006AP04626

PATIENT
  Age: 25355 Day
  Sex: Male

DRUGS (12)
  1. LOSEC [Suspect]
     Indication: REFLUX OESOPHAGITIS
     Route: 048
     Dates: start: 20060401, end: 20060411
  2. LOSEC [Suspect]
     Indication: GASTRITIS ATROPHIC
     Route: 048
     Dates: start: 20060401, end: 20060411
  3. LOSEC [Suspect]
     Route: 048
     Dates: start: 20060415, end: 20060425
  4. LOSEC [Suspect]
     Route: 048
     Dates: start: 20060415, end: 20060425
  5. NUOWEI [Concomitant]
     Dates: start: 20060301
  6. NUOWEI [Concomitant]
     Dates: start: 20060401
  7. PANTOPRAZOLE SODIUM [Concomitant]
     Dates: start: 20060301, end: 20060301
  8. PANTOPRAZOLE SODIUM [Concomitant]
     Dates: start: 20060501, end: 20060510
  9. TALCID [Concomitant]
     Dates: start: 20060501, end: 20060510
  10. ZITHROMAX [Concomitant]
     Dates: start: 20060501
  11. CECLOR [Concomitant]
  12. ZINACEF [Concomitant]

REACTIONS (3)
  - ALLERGIC GRANULOMATOUS ANGIITIS [None]
  - LEUKOCYTOCLASTIC VASCULITIS [None]
  - NEPHRITIS INTERSTITIAL [None]
